FAERS Safety Report 4677993-0 (Version None)
Quarter: 2005Q2

REPORT INFORMATION
  Report Type: 
  Country: None (occurrence: None)
  Receive Date: 20050531
  Receipt Date: 20050523
  Transmission Date: 20051028
  Serious: Yes (Hospitalization)
  Sender: FDA-Public Use
  Company Number: 2005AP03038

PATIENT
  Age: 72 Year
  Sex: Female

DRUGS (7)
  1. OMEPRAL [Suspect]
     Indication: REFLUX OESOPHAGITIS
     Route: 048
     Dates: start: 20050414, end: 20050507
  2. LANIRAPID [Concomitant]
     Route: 048
     Dates: start: 20030801
  3. LASIX [Concomitant]
     Route: 048
     Dates: start: 20030801
  4. VERAPAMIL [Concomitant]
     Route: 048
     Dates: start: 20030801
  5. ALOSENN [Concomitant]
     Route: 048
     Dates: start: 20030801
  6. LENDORM [Concomitant]
     Route: 048
     Dates: start: 20030801
  7. WARFARIN SODIUM [Concomitant]
     Indication: ATRIAL FIBRILLATION
     Route: 048
     Dates: end: 20050507

REACTIONS (1)
  - HAEMORRHAGE SUBCUTANEOUS [None]
